FAERS Safety Report 13658494 (Version 1)
Quarter: 2017Q2

REPORT INFORMATION
  Report Type: Spontaneous
  Country: US (occurrence: US)
  Receive Date: 20170616
  Receipt Date: 20170616
  Transmission Date: 20170830
  Serious: No
  Sender: FDA-Public Use
  Company Number: US-PFIZER INC-2017258883

PATIENT
  Age: 50 Year
  Sex: Female
  Weight: 96.16 kg

DRUGS (1)
  1. IBRANCE [Suspect]
     Active Substance: PALBOCICLIB
     Indication: BREAST CANCER METASTATIC
     Dosage: 125 MG, CYCLIC (DAY 1 - 21 EVERY 28 DAYS)
     Route: 048
     Dates: start: 201701

REACTIONS (2)
  - Pharyngeal oedema [Unknown]
  - Dyspnoea [Unknown]
